FAERS Safety Report 7030250-X (Version None)
Quarter: 2010Q4

REPORT INFORMATION
  Report Type: 
  Country: None (occurrence: None)
  Receive Date: 20101001
  Receipt Date: 20100922
  Transmission Date: 20110411
  Serious: Yes (Other)
  Sender: FDA-Public Use
  Company Number: 2010GW000766

PATIENT
  Age: 51 Year
  Sex: Male

DRUGS (1)
  1. ALDARA [Suspect]
     Indication: SQUAMOUS CELL CARCINOMA
     Dosage: 5 PCT;QD;TOP
     Route: 061
     Dates: start: 20100901, end: 20100904

REACTIONS (1)
  - STEVENS-JOHNSON SYNDROME [None]
